FAERS Safety Report 13274652 (Version 1)
Quarter: 2017Q1

REPORT INFORMATION
  Report Type: Report from Study
  Country: US (occurrence: US)
  Receive Date: 20170227
  Receipt Date: 20170227
  Transmission Date: 20170428
  Serious: Yes (Other)
  Sender: FDA-Public Use
  Company Number: US-SAOL THERAPEUTICS-2017SAO00378

PATIENT
  Age: 56 Year
  Sex: Female
  Weight: 75.28 kg

DRUGS (19)
  1. VITAMIN B12 [Concomitant]
     Active Substance: CYANOCOBALAMIN
     Dosage: UNK
  2. ZYRTEC [Concomitant]
     Active Substance: CETIRIZINE HYDROCHLORIDE
     Dosage: UNK
  3. MULTI VITAMIN [Concomitant]
     Active Substance: VITAMINS
  4. LIORESAL [Concomitant]
     Active Substance: BACLOFEN
  5. ASMANEX [Concomitant]
     Active Substance: MOMETASONE FUROATE
     Dosage: UNK
  6. EPIPEN [Concomitant]
     Active Substance: EPINEPHRINE
  7. ATIVAN [Concomitant]
     Active Substance: LORAZEPAM
  8. VITAMIN D3 [Concomitant]
     Active Substance: CHOLECALCIFEROL
     Dosage: UNK
  9. FLONASE [Concomitant]
     Active Substance: FLUTICASONE PROPIONATE
     Dosage: UNK
  10. VENTOLIN HFA [Concomitant]
     Active Substance: ALBUTEROL SULFATE
     Dosage: UNK
  11. GILENYA [Suspect]
     Active Substance: FINGOLIMOD HYDROCHLORIDE
     Dosage: 0.5 MG, 1X/DAY
     Route: 048
     Dates: start: 20141009
  12. TYLENOL ARTHRITIS PAIN [Concomitant]
     Active Substance: ACETAMINOPHEN
     Dosage: UNK
  13. BENADRYL [Concomitant]
     Active Substance: DIPHENHYDRAMINE HYDROCHLORIDE
     Dosage: UNK
  14. 4-AMINOPYRIDINE [Concomitant]
     Active Substance: DALFAMPRIDINE
     Dosage: UNK
  15. DIGESTIVE ENZYMES [Concomitant]
     Active Substance: UNSPECIFIED INGREDIENT
     Dosage: UNK
  16. BACLOFEN. [Suspect]
     Active Substance: BACLOFEN
     Dosage: UNK
  17. SINGULAIR [Concomitant]
     Active Substance: MONTELUKAST SODIUM
     Dosage: UNK
  18. PROBIOTIC (BIFIDOBACTERUIM LACTIS) [Concomitant]
     Dosage: UNK
  19. AMPYRA [Concomitant]
     Active Substance: DALFAMPRIDINE
     Dosage: UNK

REACTIONS (52)
  - Paraesthesia [Unknown]
  - Hypoglycaemia [Unknown]
  - Muscular weakness [Unknown]
  - Malaise [Unknown]
  - Dysmetria [Unknown]
  - Neck pain [Recovered/Resolved]
  - Colour blindness [Unknown]
  - Dysphagia [Unknown]
  - Romberg test positive [Unknown]
  - Facial spasm [Unknown]
  - Musculoskeletal stiffness [Recovering/Resolving]
  - Ataxia [Unknown]
  - Anxiety [Unknown]
  - Decreased vibratory sense [Unknown]
  - Abdominal pain [Recovered/Resolved]
  - Lymphocyte count decreased [Unknown]
  - Vision blurred [Unknown]
  - Back pain [Recovered/Resolved]
  - Muscle rigidity [Unknown]
  - Hypoaesthesia [Unknown]
  - Muscle spasticity [Unknown]
  - Constipation [Recovered/Resolved]
  - Blindness [Unknown]
  - Arthralgia [Unknown]
  - Vertigo [Unknown]
  - Insomnia [Recovered/Resolved]
  - Muscle spasms [Unknown]
  - Sinus disorder [Unknown]
  - Eye pain [Recovered/Resolved]
  - Lymphocyte percentage decreased [Unknown]
  - Asthenia [Unknown]
  - Memory impairment [Unknown]
  - Hot flush [Unknown]
  - Resting tremor [Unknown]
  - Urinary incontinence [Recovered/Resolved]
  - Temperature intolerance [Unknown]
  - Abdominal pain upper [Unknown]
  - Dysarthria [Recovering/Resolving]
  - Libido decreased [Recovered/Resolved]
  - Tinnitus [Unknown]
  - Tremor [Unknown]
  - Somnolence [Unknown]
  - Monocyte percentage increased [Unknown]
  - Bradykinesia [Unknown]
  - Headache [Recovered/Resolved]
  - Alanine aminotransferase increased [Unknown]
  - Restless legs syndrome [Recovered/Resolved]
  - Influenza like illness [Unknown]
  - Dyskinesia [Unknown]
  - Blood urea increased [Unknown]
  - Speech disorder [Unknown]
  - Chest pain [Recovered/Resolved]

NARRATIVE: CASE EVENT DATE: 20150706
